FAERS Safety Report 4675238-9 (Version None)
Quarter: 2005Q2

REPORT INFORMATION
  Report Type: 
  Country: None (occurrence: None)
  Receive Date: 20050527
  Receipt Date: 20050518
  Transmission Date: 20051028
  Serious: Yes (Other)
  Sender: FDA-Public Use
  Company Number: PHNU2005DE01976

PATIENT
  Sex: Male
  Weight: 65 kg

DRUGS (2)
  1. ZOMETA [Suspect]
     Indication: METASTASES TO BONE
     Dosage: 4 MG, ONCE/SINGLE
     Route: 042
  2. BONDRONAT [Suspect]
     Indication: METASTASES TO BONE
     Dosage: 6 MG, ONCE/SINGLE
     Route: 042

REACTIONS (2)
  - NEUROPATHIC PAIN [None]
  - POLYNEUROPATHY [None]
